FAERS Safety Report 11358082 (Version 2)
Quarter: 2015Q3

REPORT INFORMATION
  Report Type: Spontaneous
  Country: US (occurrence: US)
  Receive Date: 20150803
  Receipt Date: 20150831
  Transmission Date: 20151125
  Serious: No
  Sender: FDA-Public Use
  Company Number: US-ELI_LILLY_AND_COMPANY-US200903003593

PATIENT
  Sex: Female

DRUGS (5)
  1. STRATTERA [Suspect]
     Active Substance: ATOMOXETINE HYDROCHLORIDE
     Indication: ATTENTION DEFICIT/HYPERACTIVITY DISORDER
     Dosage: UNK, UNKNOWN
     Route: 065
     Dates: start: 200709, end: 200901
  2. TRAZODONE [Concomitant]
     Active Substance: TRAZODONE HYDROCHLORIDE
     Dosage: 150 MG, UNKNOWN
     Route: 065
  3. STRATTERA [Suspect]
     Active Substance: ATOMOXETINE HYDROCHLORIDE
     Dosage: 160 MG, DAILY (1/D)
     Route: 065
     Dates: start: 200901
  4. CYMBALTA [Suspect]
     Active Substance: DULOXETINE HYDROCHLORIDE
     Dosage: 60 MG, DAILY (1/D)
     Route: 065
     Dates: start: 200709
  5. HEROIN [Concomitant]
     Active Substance: DIACETYLMORPHINE
     Dosage: UNK, UNKNOWN
     Route: 065

REACTIONS (7)
  - Pain in extremity [Unknown]
  - Cardiac disorder [Unknown]
  - Overdose [Unknown]
  - Fatigue [Unknown]
  - Condition aggravated [Unknown]
  - Feeling cold [Unknown]
  - Cold sweat [Unknown]

NARRATIVE: CASE EVENT DATE: 200901
